FAERS Safety Report 10471241 (Version 5)
Quarter: 2015Q3

REPORT INFORMATION
  Report Type: Report from Study
  Country: US (occurrence: US)
  Receive Date: 20140923
  Receipt Date: 20150702
  Transmission Date: 20151125
  Serious: Yes (Hospitalization, Other)
  Sender: FDA-Public Use
  Company Number: PHEH2012US005626

PATIENT
  Age: 81 Year
  Sex: Female
  Weight: 55 kg

DRUGS (9)
  1. TRAMADOL. [Concomitant]
     Active Substance: TRAMADOL
     Indication: PRODUCT USED FOR UNKNOWN INDICATION
     Dosage: 1 DF, Q6H
     Route: 048
  2. ONDANSETRON [Concomitant]
     Active Substance: ONDANSETRON
     Indication: NAUSEA
     Route: 048
  3. EXJADE [Suspect]
     Active Substance: DEFERASIROX
     Dosage: 250 MG
     Route: 048
  4. ESTRACE [Concomitant]
     Active Substance: ESTRADIOL
     Indication: PRODUCT USED FOR UNKNOWN INDICATION
     Dosage: 0.5 G, QW2
     Route: 067
  5. EXJADE [Suspect]
     Active Substance: DEFERASIROX
     Indication: MYELODYSPLASTIC SYNDROME
     Dosage: 5000 MG (TABLETS OF 500 MG), QD
     Route: 048
     Dates: start: 2008
  6. EXJADE [Suspect]
     Active Substance: DEFERASIROX
     Dosage: 5000 MG (20 TABLETS OF 250 MG), QD (MIX AND DRINK TABLETS)
     Route: 048
  7. NEXIUM [Concomitant]
     Active Substance: ESOMEPRAZOLE MAGNESIUM
     Indication: GASTROOESOPHAGEAL REFLUX DISEASE
     Dosage: 1 DF, QD
     Route: 048
  8. ROCEPHINE [Concomitant]
     Active Substance: CEFTRIAXONE SODIUM
     Indication: PRODUCT USED FOR UNKNOWN INDICATION
     Route: 065
  9. IMODIUM [Concomitant]
     Active Substance: LOPERAMIDE HYDROCHLORIDE
     Indication: DIARRHOEA
     Dosage: 2 MG,  (BEFORE EXJADE) 5 TIMES A DAY OR PRN
     Route: 065

REACTIONS (12)
  - Abdominal discomfort [Unknown]
  - Platelet count decreased [Unknown]
  - Hydronephrosis [Unknown]
  - Pyelonephritis acute [Unknown]
  - Hypertension [Unknown]
  - Escherichia urinary tract infection [Unknown]
  - Abdominal pain [Recovering/Resolving]
  - Acute kidney injury [Unknown]
  - Hypovolaemia [Unknown]
  - Infection [Unknown]
  - Klebsiella infection [Unknown]
  - Nausea [Recovering/Resolving]

NARRATIVE: CASE EVENT DATE: 201402
